FAERS Safety Report 4743762-6 (Version None)
Quarter: 2005Q3

REPORT INFORMATION
  Report Type: 
  Country: None (occurrence: None)
  Receive Date: 20050812
  Receipt Date: 20050805
  Transmission Date: 20060218
  Serious: Yes (Hospitalization)
  Sender: FDA-Public Use
  Company Number: NO-GLAXOSMITHKLINE-B0390349A

PATIENT
  Age: 30 Year
  Sex: Female

DRUGS (4)
  1. LAMICTAL [Suspect]
     Indication: EPILEPSY
     Route: 048
     Dates: start: 20050620, end: 20050708
  2. CLONAZEPAM [Concomitant]
     Route: 048
  3. LEVETIRACETAM [Concomitant]
     Route: 048
  4. CARBAMAZEPINE [Concomitant]
     Route: 048

REACTIONS (9)
  - ALANINE AMINOTRANSFERASE INCREASED [None]
  - ANAEMIA HAEMOLYTIC AUTOIMMUNE [None]
  - ASPARTATE AMINOTRANSFERASE INCREASED [None]
  - BLOOD ALKALINE PHOSPHATASE INCREASED [None]
  - BLOOD LACTATE DEHYDROGENASE INCREASED [None]
  - CHILLS [None]
  - GAMMA-GLUTAMYLTRANSFERASE INCREASED [None]
  - LIVER FUNCTION TEST ABNORMAL [None]
  - PYREXIA [None]
